FAERS Safety Report 8517529-7 (Version None)
Quarter: 2012Q2

REPORT INFORMATION
  Report Type: 
  Country: None (occurrence: None)
  Receive Date: 20120406
  Receipt Date: 20090526
  Transmission Date: 20120825
  Serious: Yes (Other)
  Sender: FDA-Public Use
  Company Number: PHEH2009US05281

PATIENT
  Sex: Female

DRUGS (9)
  1. FLUTICASONE PROPIONATE [Concomitant]
  2. KLOR-CON [Concomitant]
  3. BONIVA [Concomitant]
  4. SINGULAIR [Concomitant]
  5. PREVACID [Concomitant]
  6. TASIGNA [Suspect]
     Dosage: 400 MG, BID, ORAL
     Route: 048
     Dates: start: 20090406
  7. FUROSEMIDE (FUROSEMIDE) [Concomitant]
  8. ADVAIR HFA [Concomitant]
  9. TIZANIDINE HCL [Concomitant]

REACTIONS (4)
  - PRURITUS [None]
  - RASH GENERALISED [None]
  - EXCESSIVE EYE BLINKING [None]
  - BURNING SENSATION [None]
